FAERS Safety Report 7978700-6 (Version None)
Quarter: 2011Q4

REPORT INFORMATION
  Report Type: 
  Country: None (occurrence: None)
  Receive Date: 20111214
  Receipt Date: 20111208
  Transmission Date: 20120403
  Serious: Yes (Hospitalization)
  Sender: FDA-Public Use
  Company Number: US-SANOFI-AVENTIS-2011SA080858

PATIENT
  Age: 85 Year
  Sex: Female

DRUGS (1)
  1. PLAVIX [Suspect]
     Route: 048
     Dates: start: 20111202

REACTIONS (4)
  - VASCULAR OCCLUSION [None]
  - RASH [None]
  - PRURITUS [None]
  - PAIN [None]
